FAERS Safety Report 21659063 (Version 1)
Quarter: 2022Q4

REPORT INFORMATION
  Report Type: Spontaneous
  Country: ES (occurrence: ES)
  Receive Date: 20221129
  Receipt Date: 20221129
  Transmission Date: 20230113
  Serious: Yes (Hospitalization)
  Sender: FDA-Public Use
  Company Number: ES-AGEMED-722573344

PATIENT
  Age: 23 Year
  Sex: Female
  Weight: 65 kg

DRUGS (1)
  1. LEVONORGESTREL [Suspect]
     Active Substance: LEVONORGESTREL
     Indication: Post coital contraception
     Dosage: || DOSIS UNIDAD FRECUENCIA: 1.5 MG-MILIGRAMOS || DOSIS POR TOMA: 1.5 MG-MILIGRAMOS || NO TOMAS POR U
     Route: 048
     Dates: start: 20090807, end: 20090807

REACTIONS (1)
  - Cerebral infarction [None]

NARRATIVE: CASE EVENT DATE: 20090808
